FAERS Safety Report 9637504 (Version 2)
Quarter: 2013Q4

REPORT INFORMATION
  Report Type: Spontaneous
  Country: FR (occurrence: FR)
  Receive Date: 20131022
  Receipt Date: 20131127
  Transmission Date: 20140711
  Serious: Yes (Other)
  Sender: FDA-Public Use
  Company Number: FR-JNJFOC-20131011181

PATIENT
  Age: 80 Year
  Sex: Male

DRUGS (7)
  1. XARELTO [Suspect]
     Indication: CEREBROVASCULAR ACCIDENT PROPHYLAXIS
     Route: 048
  2. XARELTO [Suspect]
     Indication: CEREBROVASCULAR ACCIDENT PROPHYLAXIS
     Route: 048
     Dates: start: 20130806
  3. XARELTO [Suspect]
     Indication: ATRIAL FIBRILLATION
     Route: 048
     Dates: start: 20130806
  4. XARELTO [Suspect]
     Indication: ATRIAL FIBRILLATION
     Route: 048
  5. KARDEGIC [Concomitant]
     Route: 065
     Dates: end: 20130806
  6. FEBUXOSTAT [Concomitant]
     Route: 065
     Dates: start: 201306
  7. CORDARONE [Concomitant]
     Route: 065

REACTIONS (5)
  - Blood creatinine increased [Unknown]
  - Melaena [Unknown]
  - Urinary bladder polyp [Not Recovered/Not Resolved]
  - Gastric ulcer [Unknown]
  - Haematuria [Unknown]
